FAERS Safety Report 8125445-8 (Version None)
Quarter: 2012Q1

REPORT INFORMATION
  Report Type: 
  Country: None (occurrence: None)
  Receive Date: 20120209
  Receipt Date: 20120130
  Transmission Date: 20120608
  Serious: Yes (Hospitalization, Disabling, Other)
  Sender: FDA-Public Use
  Company Number: US-MERCK-1107USA02570

PATIENT
  Age: 75 Year
  Sex: Female
  Weight: 61 kg

DRUGS (9)
  1. BONIVA [Suspect]
     Indication: OSTEOPENIA
     Route: 048
     Dates: start: 20060601, end: 20070301
  2. ACTONEL [Suspect]
     Indication: OSTEOPOROSIS
     Route: 048
     Dates: start: 20070301, end: 20081201
  3. FORTEO [Suspect]
     Indication: OSTEOPOROSIS
     Route: 065
  4. FOSAMAX [Suspect]
     Route: 048
     Dates: start: 19950101, end: 20050101
  5. FOSAMAX [Suspect]
     Route: 048
     Dates: start: 19950101, end: 20050101
  6. BONIVA [Suspect]
     Indication: OSTEOPOROSIS
     Route: 048
     Dates: start: 20060601, end: 20070301
  7. FOSAMAX [Suspect]
     Indication: OSTEOPOROSIS
     Route: 048
     Dates: start: 19980101, end: 20060601
  8. FOSAMAX [Suspect]
     Indication: OSTEOPENIA
     Route: 048
     Dates: start: 19980101, end: 20060601
  9. ACTONEL [Suspect]
     Indication: OSTEOPENIA
     Route: 048
     Dates: start: 20070301, end: 20081201

REACTIONS (49)
  - BLEPHARITIS [None]
  - EYE DISORDER [None]
  - BLOOD CHOLESTEROL INCREASED [None]
  - BACK PAIN [None]
  - ABDOMINAL PAIN [None]
  - DEEP VEIN THROMBOSIS [None]
  - GLOSSODYNIA [None]
  - MALAISE [None]
  - HAEMORRHOIDS [None]
  - CARDIOMEGALY [None]
  - GASTROOESOPHAGEAL REFLUX DISEASE [None]
  - HEPATIC ENZYME INCREASED [None]
  - CATARACT [None]
  - PULMONARY EMBOLISM [None]
  - DIARRHOEA [None]
  - STOMATITIS [None]
  - HYPERTENSION [None]
  - ARTHRALGIA [None]
  - ATELECTASIS [None]
  - GALLBLADDER DISORDER [None]
  - DEPRESSION [None]
  - OSTEONECROSIS OF JAW [None]
  - JAW DISORDER [None]
  - ACUTE SINUSITIS [None]
  - ANGINA PECTORIS [None]
  - FATIGUE [None]
  - HYPERGLYCAEMIA [None]
  - DRUG INEFFECTIVE [None]
  - TREMOR [None]
  - TOOTH DISORDER [None]
  - GLOSSITIS [None]
  - ORAL INFECTION [None]
  - BLADDER DISORDER [None]
  - CORONARY ARTERY DISEASE [None]
  - DIVERTICULITIS [None]
  - UTERINE DISORDER [None]
  - OSTEONECROSIS [None]
  - EYE PAIN [None]
  - SENSITIVITY OF TEETH [None]
  - OSTEOARTHRITIS [None]
  - MYOFASCIAL PAIN SYNDROME [None]
  - HYPERLIPIDAEMIA [None]
  - ANGIOPATHY [None]
  - HEPATIC STEATOSIS [None]
  - DRY EYE [None]
  - VITREOUS DETACHMENT [None]
  - ORAL TORUS [None]
  - HIATUS HERNIA [None]
  - ANXIETY [None]
